FAERS Safety Report 23671523 (Version 3)
Quarter: 2024Q2

REPORT INFORMATION
  Report Type: Spontaneous
  Country: US (occurrence: US)
  Receive Date: 20240326
  Receipt Date: 20240419
  Transmission Date: 20240716
  Serious: No
  Sender: FDA-Public Use
  Company Number: US-JNJFOC-20240363710

PATIENT
  Age: 45 Year
  Sex: Female

DRUGS (1)
  1. SPRAVATO [Suspect]
     Active Substance: ESKETAMINE
     Indication: Product used for unknown indication
     Dosage: 84 MG, 6 KITS IN 1 WEEK
     Dates: start: 20231018, end: 20240228

REACTIONS (2)
  - Aggression [Unknown]
  - Irritability [Unknown]
